FAERS Safety Report 4880609-1 (Version None)
Quarter: 2005Q4

REPORT INFORMATION
  Report Type: 
  Country: None (occurrence: None)
  Receive Date: 20051223
  Receipt Date: 20051121
  Transmission Date: 20060501
  Serious: No
  Sender: FDA-Public Use
  Company Number: 05P-163-0317758-00

PATIENT
  Age: 53 Year
  Sex: Female
  Weight: 74.8435 kg

DRUGS (12)
  1. HUMIRA [Suspect]
     Indication: RHEUMATOID ARTHRITIS
     Dosage: 40 MG, 1 IN 2 WK, SUBCUTANEOUS
     Route: 058
     Dates: start: 20050701, end: 20050901
  2. HUMIRA [Suspect]
     Indication: RHEUMATOID ARTHRITIS
     Dosage: 40 MG, 1 IN 2 WK, SUBCUTANEOUS
     Route: 058
     Dates: start: 20051111
  3. OXYCODONE HCL [Concomitant]
  4. CARISOPRODOL [Concomitant]
  5. SERTRALINE HYDROCHLORIDE [Concomitant]
  6. AMITRIPTYLINE HCL [Concomitant]
  7. CETIRIZINE HYDROCHLORIDE [Concomitant]
  8. PANTOPRAZOLE [Concomitant]
  9. SALBUTAMOL [Concomitant]
  10. SINGULAIR [Concomitant]
  11. PILOCARPINE HYDROCHLORIDE [Concomitant]
  12. LIDODERM [Concomitant]

REACTIONS (10)
  - ABDOMINAL PAIN [None]
  - DEPRESSION [None]
  - DYSPHONIA [None]
  - GENERALISED OEDEMA [None]
  - GINGIVAL BLEEDING [None]
  - HYPOAESTHESIA [None]
  - NERVOUSNESS [None]
  - OSTEOARTHRITIS [None]
  - VISUAL DISTURBANCE [None]
  - WEIGHT INCREASED [None]
